FAERS Safety Report 15541390 (Version 1)
Quarter: 2018Q4

REPORT INFORMATION
  Report Type: Report from Study
  Country: US (occurrence: US)
  Receive Date: 20181023
  Receipt Date: 20181023
  Transmission Date: 20190205
  Serious: Yes (Hospitalization, Other)
  Sender: FDA-Public Use
  Company Number: US-GILEAD-2018-0369852

PATIENT
  Age: 57 Year
  Sex: Male

DRUGS (12)
  1. MILK THISTLE PLUS                  /08512201/ [Concomitant]
  2. MULTI VIT [Concomitant]
  3. ECHINACEA                          /01323501/ [Concomitant]
     Active Substance: ECHINACEA PURPUREA
  4. PROPANOLOL                         /00030001/ [Concomitant]
     Active Substance: PROPRANOLOL HYDROCHLORIDE
  5. CALCIUM MAGNESIUM                  /00591201/ [Concomitant]
  6. VIT B1 [Concomitant]
     Active Substance: THIAMINE HYDROCHLORIDE
  7. VIT E                              /00110501/ [Concomitant]
     Active Substance: TOCOPHEROL
  8. AMBRISENTAN [Suspect]
     Active Substance: AMBRISENTAN
     Indication: PULMONARY HYPERTENSION
     Dosage: 5 MG, QD
     Route: 065
     Dates: start: 20131130
  9. ALLOPURINOL. [Concomitant]
     Active Substance: ALLOPURINOL
  10. FISH OIL [Concomitant]
     Active Substance: FISH OIL
  11. LASIX [Concomitant]
     Active Substance: FUROSEMIDE
  12. VITAMIN B12 [Concomitant]
     Active Substance: CYANOCOBALAMIN

REACTIONS (2)
  - Intentional dose omission [Not Recovered/Not Resolved]
  - Liver transplant [Not Recovered/Not Resolved]

NARRATIVE: CASE EVENT DATE: 20180926
